FAERS Safety Report 17718250 (Version 15)
Quarter: 2022Q3

REPORT INFORMATION
  Report Type: Spontaneous
  Country: DE (occurrence: DE)
  Receive Date: 20200428
  Receipt Date: 20220907
  Transmission Date: 20221026
  Serious: Yes (Life-Threatening, Hospitalization, Other)
  Sender: FDA-Public Use
  Company Number: None

PATIENT
  Age: 68 Year
  Sex: Male
  Weight: 77 kg

DRUGS (35)
  1. TORSEMIDE [Interacting]
     Active Substance: TORSEMIDE
     Indication: Renal disorder
     Dosage: 10 MILLIGRAM, QD IN MORNING, DAILY,1-0-0
     Route: 065
     Dates: start: 201808
  2. TORSEMIDE [Interacting]
     Active Substance: TORSEMIDE
     Dosage: 1 DF, QD (10 UNK, QD)
     Route: 065
     Dates: start: 201808
  3. AMLODIPINE [Interacting]
     Active Substance: AMLODIPINE BESYLATE
     Indication: Hypertension
     Dosage: 10 MILLIGRAM, QD (5 MILLIGRAM, BID) 1-0-1
     Route: 065
     Dates: start: 201808
  4. SIMVASTATIN [Interacting]
     Active Substance: SIMVASTATIN
     Indication: Blood cholesterol abnormal
     Dosage: 40 MILLIGRAM, QD
     Route: 048
     Dates: start: 20110506
  5. SIMVASTATIN [Interacting]
     Active Substance: SIMVASTATIN
     Indication: Hypertension
     Dosage: 40 MILLIGRAM, QD, DAILY;0-0-1
     Route: 048
     Dates: start: 20110506
  6. SIMVASTATIN [Interacting]
     Active Substance: SIMVASTATIN
     Indication: Diabetes mellitus
     Dosage: 40 MILLIGRAM, QD
     Route: 048
     Dates: start: 201808
  7. SIMVASTATIN [Interacting]
     Active Substance: SIMVASTATIN
     Indication: Coronary artery disease
     Dosage: 10 MILLIGRAM, QD
     Route: 065
     Dates: start: 201808
  8. SIMVASTATIN [Interacting]
     Active Substance: SIMVASTATIN
     Indication: Gout
     Dosage: 15 INTERNATIONAL UNIT, QD
     Route: 065
     Dates: start: 201808
  9. SIMVASTATIN [Interacting]
     Active Substance: SIMVASTATIN
     Indication: Blood cholesterol abnormal
     Dosage: 50 MILLIGRAM, QD
     Route: 065
     Dates: start: 201808
  10. SIMVASTATIN [Interacting]
     Active Substance: SIMVASTATIN
     Indication: Blood cholesterol
     Dosage: 10 MILLIGRAM, QD
     Route: 065
     Dates: start: 201808
  11. SIMVASTATIN [Interacting]
     Active Substance: SIMVASTATIN
     Dosage: 0-0-115 INTERNATIONAL UNIT, DAILY
     Route: 065
     Dates: start: 201808
  12. SIMVASTATIN [Interacting]
     Active Substance: SIMVASTATIN
     Dosage: 100 MILLIGRAM, QD
     Route: 065
     Dates: start: 201808
  13. INSULIN GLARGINE [Interacting]
     Active Substance: INSULIN GLARGINE
     Indication: Diabetes mellitus
     Dosage: 15 INTERNATIONAL UNIT, DAILY
     Route: 065
     Dates: start: 201808
  14. SPIRONOLACTONE [Interacting]
     Active Substance: SPIRONOLACTONE
     Indication: Coronary artery disease
     Dosage: 50 MILLIGRAM, QD
     Route: 048
     Dates: start: 20110506
  15. SPIRONOLACTONE [Interacting]
     Active Substance: SPIRONOLACTONE
     Indication: Cardiac disorder
     Dosage: 50 MILLIGRAM, DAILY, 1-0-0; 50 MILLIGRAM, QD, IN MORNING
     Route: 048
     Dates: start: 201808
  16. BENFOTIAMINE [Interacting]
     Active Substance: BENFOTIAMINE
     Indication: Cardiovascular disorder
     Dosage: 300 MILLIGRAM, DAILY
     Route: 065
     Dates: start: 201808
  17. BENFOTIAMINE [Interacting]
     Active Substance: BENFOTIAMINE
     Indication: Cerebrovascular accident prophylaxis
  18. IVABRADINE [Interacting]
     Active Substance: IVABRADINE
     Indication: Cardiac disorder
     Dosage: 7.5 MILLIGRAM, QD, 1-0-0
     Route: 065
     Dates: start: 201808
  19. INSULIN GLARGINE [Interacting]
     Active Substance: INSULIN GLARGINE
     Indication: Diabetes mellitus
     Dosage: 15 IE ABENDS
     Route: 065
     Dates: start: 201808
  20. AVASTIN [Interacting]
     Active Substance: BEVACIZUMAB
     Indication: Diabetic retinal oedema
     Dosage: 1 DOSAGE FORM ( INJECT IN THE RIGHT EYE AT 1.30 P.M)
     Route: 031
     Dates: start: 20200115
  21. CARVEDILOL [Interacting]
     Active Substance: CARVEDILOL
     Indication: Cardiac disorder
     Dosage: 50 MILLIGRAM, QD (25 MILLIGRAM, Q12H)
     Route: 065
     Dates: start: 201808
  22. CARVEDILOL [Interacting]
     Active Substance: CARVEDILOL
     Dosage: 25 MILLIGRAM, BID, (1-0-1)
     Route: 065
     Dates: start: 201808
  23. ELIQUIS [Interacting]
     Active Substance: APIXABAN
     Indication: Atrial fibrillation
     Dosage: 5 MILLIGRAM, BID
     Route: 065
     Dates: start: 201808
  24. ELIQUIS [Interacting]
     Active Substance: APIXABAN
     Indication: Cerebrovascular accident prophylaxis
     Dosage: 5 MILLIGRAM, BID
     Route: 065
     Dates: start: 201808
  25. ELIQUIS [Interacting]
     Active Substance: APIXABAN
     Dosage: UNK
     Route: 065
  26. JANUMET [Interacting]
     Active Substance: METFORMIN HYDROCHLORIDE\SITAGLIPTIN PHOSPHATE
     Indication: Diabetes mellitus
     Dosage: 1 DOSAGE FORM (50/1000MG), DAILY,
     Route: 065
     Dates: start: 201808
  27. JANUMET [Interacting]
     Active Substance: METFORMIN HYDROCHLORIDE\SITAGLIPTIN PHOSPHATE
     Dosage: 1 DOSAGE FORM (50/1000MG), DAILY, 1 DOSAGE FORM, Q12H
     Route: 065
     Dates: start: 201808
  28. JANUMET [Interacting]
     Active Substance: METFORMIN HYDROCHLORIDE\SITAGLIPTIN PHOSPHATE
     Dosage: 1 DOSAGE FORM, Q12H
     Route: 065
     Dates: start: 201808
  29. JANUMET [Interacting]
     Active Substance: METFORMIN HYDROCHLORIDE\SITAGLIPTIN PHOSPHATE
     Dosage: 2 DF, Q12H (50/1000 MILLIGRAM)
     Route: 065
     Dates: start: 201808
  30. RAMIPRIL [Interacting]
     Active Substance: RAMIPRIL
     Indication: Hypertension
     Dosage: 10 MILLIGRAM, QD / (5 MILLIGRAM, BID,1-0-1)
     Route: 065
     Dates: start: 201808
  31. ALLOPURINOL [Interacting]
     Active Substance: ALLOPURINOL
     Indication: Gout
     Dosage: 100 MILLIGRAM, QD
     Route: 065
     Dates: start: 201808
  32. ALLOPURINOL [Interacting]
     Active Substance: ALLOPURINOL
     Dosage: 100 MILLIGRAM, QD
     Route: 065
  33. ALLOPURINOL [Interacting]
     Active Substance: ALLOPURINOL
     Dosage: 100 MILLIGRAM, QD
     Route: 065
  34. LEVETIRACETAM [Concomitant]
     Active Substance: LEVETIRACETAM
     Indication: Product used for unknown indication
     Dosage: 1 DOSAGE FORM, BID
     Route: 065
  35. LEVETIRACETAM [Concomitant]
     Active Substance: LEVETIRACETAM
     Dosage: 2 DF, 1X/DAY (1-0-1)
     Route: 065

REACTIONS (9)
  - Eye movement disorder [Recovered/Resolved]
  - Movement disorder [Recovered/Resolved]
  - Seizure [Recovered/Resolved]
  - Oculogyric crisis [Recovered/Resolved]
  - Status epilepticus [Recovering/Resolving]
  - Drug interaction [Recovered/Resolved]
  - Muscle spasms [Recovered/Resolved]
  - Off label use [Recovered/Resolved]
  - Product use issue [Recovered/Resolved]

NARRATIVE: CASE EVENT DATE: 20180801
